FAERS Safety Report 7361430-1 (Version None)
Quarter: 2011Q1

REPORT INFORMATION
  Report Type: 
  Country: None (occurrence: None)
  Receive Date: 20110318
  Receipt Date: 20110308
  Transmission Date: 20110831
  Serious: Yes (Death, Hospitalization)
  Sender: FDA-Public Use
  Company Number: JP-EISAI INC-E3810-04084-SPO-JP

PATIENT
  Age: 82 Year
  Sex: Male

DRUGS (15)
  1. LYRICA [Concomitant]
     Indication: RHEUMATOID ARTHRITIS
     Route: 048
     Dates: start: 20100806, end: 20100831
  2. VOLTAREN [Concomitant]
  3. ALPROSTADIL ALFADEX [Concomitant]
  4. PARIET (RABEPRAZOLE) [Suspect]
     Indication: GASTRIC ULCER HAEMORRHAGE
     Route: 048
     Dates: start: 20100819, end: 20100831
  5. FLOMAX [Concomitant]
  6. GENTAMICIN SULFATE [Concomitant]
  7. PREDONINE [Concomitant]
     Route: 048
     Dates: start: 20100728, end: 20100803
  8. PREDONINE [Concomitant]
     Indication: TRIGEMINAL PALSY
     Route: 048
     Dates: start: 20100819, end: 20100825
  9. PREDONINE [Concomitant]
     Indication: RHEUMATOID ARTHRITIS
     Route: 048
     Dates: start: 20100804, end: 20100818
  10. AMBROXOL HYDROCHLORIDE [Concomitant]
  11. RHEUMATREX [Concomitant]
     Indication: RHEUMATOID ARTHRITIS
     Dates: end: 20100831
  12. CALONAL [Concomitant]
     Indication: PYREXIA
     Dates: start: 20100829
  13. PREDONINE [Concomitant]
     Route: 048
     Dates: start: 20100724, end: 20100727
  14. BETAMETHASONE [Concomitant]
     Indication: RHEUMATOID ARTHRITIS
     Route: 048
     Dates: start: 20100829, end: 20100831
  15. PREDONINE [Concomitant]
     Route: 048
     Dates: start: 20100721, end: 20100723

REACTIONS (3)
  - DEATH [None]
  - LEUKOPENIA [None]
  - THROMBOCYTOPENIA [None]
